FAERS Safety Report 6881446-9 (Version None)
Quarter: 2010Q3

REPORT INFORMATION
  Report Type: 
  Country: None (occurrence: None)
  Receive Date: 20100728
  Receipt Date: 20100728
  Transmission Date: 20110219
  Serious: Yes (Life-Threatening, Hospitalization)
  Sender: FDA-Public Use
  Company Number: None

PATIENT
  Age: 59 Year
  Sex: Female
  Weight: 76.6579 kg

DRUGS (1)
  1. NAPROXEN [Suspect]
     Indication: ARTHRITIS
     Dosage: 500 MG ONCE PER DAY PO
     Route: 048
     Dates: start: 20100410, end: 20100718

REACTIONS (2)
  - HAEMATOCHEZIA [None]
  - PRODUCT QUALITY ISSUE [None]
